FAERS Safety Report 19751065 (Version 1)
Quarter: 2021Q3

REPORT INFORMATION
  Report Type: Spontaneous
  Country: US (occurrence: US)
  Receive Date: 20210826
  Receipt Date: 20210826
  Transmission Date: 20211014
  Serious: No
  Sender: FDA-Public Use
  Company Number: US-PFIZER INC-202101042408

PATIENT
  Age: 58 Year
  Sex: Female

DRUGS (6)
  1. MAGNESIUM SULFATE. [Concomitant]
     Active Substance: MAGNESIUM SULFATE
     Dosage: 100 MG
  2. IBRANCE [Suspect]
     Active Substance: PALBOCICLIB
     Dosage: 100 MG, CYCLIC (DAILY FOR 21 DAYS)
     Route: 048
     Dates: start: 202104
  3. VITAMIN D3 [Concomitant]
     Active Substance: CHOLECALCIFEROL
     Dosage: 10 UG
  4. FASLODEX [Concomitant]
     Active Substance: FULVESTRANT
     Dosage: 250MG /5ML SYRINGE
  5. NIFEDIPINE A [Concomitant]
     Active Substance: NIFEDIPINE
     Dosage: 10 MG
  6. IBRANCE [Suspect]
     Active Substance: PALBOCICLIB
     Indication: ILLNESS
     Dosage: 125 MG
     Dates: end: 202107

REACTIONS (6)
  - Fatigue [Unknown]
  - White blood cell count decreased [Unknown]
  - Infection [Unknown]
  - Decreased appetite [Unknown]
  - Hair growth abnormal [Unknown]
  - Pyrexia [Unknown]

NARRATIVE: CASE EVENT DATE: 202107
